FAERS Safety Report 25943051 (Version 1)
Quarter: 2025Q4

REPORT INFORMATION
  Report Type: Spontaneous
  Country: US (occurrence: None)
  Receive Date: 20251020
  Receipt Date: 20251020
  Transmission Date: 20260118
  Serious: Yes (Hospitalization)
  Sender: FDA-CTU
  Company Number: None

PATIENT
  Sex: Male

DRUGS (8)
  1. DIMETHYL FUMARATE [Suspect]
     Active Substance: DIMETHYL FUMARATE
     Indication: Multiple sclerosis
     Dosage: OTHER FREQUENCY : TWICE DAILY FOR 7 DAYS, THEN 240MG TWICE DAILY FOR 30 DAYS;?
     Route: 048
     Dates: start: 20250815
  2. ASPIRIN LOW TAB [Concomitant]
  3. DIMETHYL FUM CAP [Concomitant]
  4. GABAPENTIN [Concomitant]
     Active Substance: GABAPENTIN
  5. LEVOTHYROXINE [Concomitant]
     Active Substance: LEVOTHYROXINE
  6. PRALUENT [Concomitant]
     Active Substance: ALIROCUMAB
  7. PRILOSEC OTC TAB [Concomitant]
  8. TYLENOL [Concomitant]
     Active Substance: ACETAMINOPHEN

REACTIONS (1)
  - Surgery [None]
